FAERS Safety Report 5659702-1 (Version None)
Quarter: 2008Q1

REPORT INFORMATION
  Report Type: 
  Country: None (occurrence: None)
  Receive Date: 20080311
  Receipt Date: 20070622
  Transmission Date: 20080703
  Serious: No
  Sender: FDA-Public Use
  Company Number: US-BAYER-200712011BCC

PATIENT
  Age: 72 Year
  Sex: Male
  Weight: 132 kg

DRUGS (9)
  1. ALEVE [Suspect]
     Indication: NEURALGIA
     Dosage: TOTAL DAILY DOSE: 1760 MG  UNIT DOSE: 220 MG
     Route: 048
     Dates: start: 20070620
  2. ALEVE [Suspect]
     Dosage: UNIT DOSE: 220 MG
     Route: 048
     Dates: start: 20070621
  3. GLUCOPHAGE [Concomitant]
  4. GLIPIZIDE [Concomitant]
  5. TENORMIN [Concomitant]
  6. ZOCOR [Concomitant]
  7. TOPROL [Concomitant]
  8. VICODIN [Concomitant]
     Indication: NEURALGIA
  9. MOTRIN [Concomitant]
     Indication: NEURALGIA

REACTIONS (2)
  - ILL-DEFINED DISORDER [None]
  - NO ADVERSE EVENT [None]
